FAERS Safety Report 10003532 (Version 1)
Quarter: 2014Q1

REPORT INFORMATION
  Report Type: Report from Study
  Country: GB (occurrence: GB)
  Receive Date: 20140312
  Receipt Date: 20140312
  Transmission Date: 20141002
  Serious: Yes (Hospitalization)
  Sender: FDA-Public Use
  Company Number: GB-ABBVIE-14P-167-1209507-00

PATIENT
  Age: 59 Year
  Sex: Male
  Weight: 105 kg

DRUGS (2)
  1. HUMIRA [Suspect]
     Indication: PRODUCT USED FOR UNKNOWN INDICATION
     Dosage: TDS
     Route: 050
     Dates: start: 20131007
  2. AMLODIPINE [Concomitant]
     Indication: HYPERTENSION
     Dosage: 5
     Route: 048
     Dates: start: 20130219, end: 20131127

REACTIONS (2)
  - Gastrooesophageal reflux disease [Recovered/Resolved]
  - Oedema peripheral [Recovered/Resolved]
